FAERS Safety Report 19824577 (Version 1)
Quarter: 2021Q3

REPORT INFORMATION
  Report Type: Spontaneous
  Country: FR (occurrence: FR)
  Receive Date: 20210914
  Receipt Date: 20210914
  Transmission Date: 20211014
  Serious: Yes (Other)
  Sender: FDA-Public Use
  Company Number: FR-SA-2021SA298709

PATIENT
  Age: 48 Year
  Sex: Male
  Weight: 56 kg

DRUGS (4)
  1. AMIKACIN. [Suspect]
     Active Substance: AMIKACIN
     Indication: PNEUMONIA
     Dosage: 15 MG/KG, QD
     Route: 042
     Dates: start: 202105, end: 20210617
  2. ETHAMBUTOL [Suspect]
     Active Substance: ETHAMBUTOL HYDROCHLORIDE
     Indication: PNEUMONIA
     Dosage: 1 G, QD
     Route: 048
     Dates: start: 20210323
  3. RIFAMPICIN [Suspect]
     Active Substance: RIFAMPIN
     Indication: PNEUMONIA
     Dosage: 600 MG, QD
     Route: 048
     Dates: start: 20210323
  4. CLARITHROMYCIN. [Suspect]
     Active Substance: CLARITHROMYCIN
     Indication: PNEUMONIA
     Dosage: 1000 MG, QD
     Route: 048
     Dates: start: 20210323, end: 202108

REACTIONS (1)
  - Deafness neurosensory [Not Recovered/Not Resolved]

NARRATIVE: CASE EVENT DATE: 202107
